FAERS Safety Report 7427776-3 (Version None)
Quarter: 2011Q2

REPORT INFORMATION
  Report Type: 
  Country: None (occurrence: None)
  Receive Date: 20110421
  Receipt Date: 20110407
  Transmission Date: 20111010
  Serious: Yes (Other)
  Sender: FDA-Public Use
  Company Number: US-JNJFOC-20110202251

PATIENT
  Sex: Male

DRUGS (6)
  1. MULTI-VITAMINS [Concomitant]
  2. AZULFIDINE [Concomitant]
  3. REMICADE [Suspect]
     Indication: ANKYLOSING SPONDYLITIS
     Route: 042
  4. ALOE VERA [Concomitant]
  5. PREDNISONE [Concomitant]
  6. FISH OIL [Concomitant]

REACTIONS (1)
  - HYPOPHARYNGEAL CANCER STAGE III [None]
